FAERS Safety Report 20925238 (Version 2)
Quarter: 2022Q3

REPORT INFORMATION
  Report Type: Spontaneous
  Country: US (occurrence: US)
  Receive Date: 20220607
  Receipt Date: 20220921
  Transmission Date: 20221027
  Serious: No
  Sender: FDA-Public Use
  Company Number: US-PHARMAESSENTIA CORPORATION-US-2022-PEC-000571

PATIENT

DRUGS (10)
  1. BESREMI [Suspect]
     Active Substance: ROPEGINTERFERON ALFA-2B-NJFT
     Indication: Polycythaemia vera
     Dosage: 50 MICROGRAM,ONCE EVERY 2 WEEKS
     Route: 058
     Dates: start: 20220214
  2. BESREMI [Suspect]
     Active Substance: ROPEGINTERFERON ALFA-2B-NJFT
     Dosage: 100 MICROGRAM, Q2W
     Route: 058
  3. BESREMI [Suspect]
     Active Substance: ROPEGINTERFERON ALFA-2B-NJFT
     Dosage: 100 MCG, Q2W
     Route: 065
     Dates: start: 20220519
  4. BESREMI [Suspect]
     Active Substance: ROPEGINTERFERON ALFA-2B-NJFT
     Dosage: 250 MICROGRAM, Q2W
     Route: 058
  5. BESREMI [Suspect]
     Active Substance: ROPEGINTERFERON ALFA-2B-NJFT
     Dosage: 100 MICROGRAM, Q2W
     Route: 058
  6. CARTIA XT [Concomitant]
     Active Substance: DILTIAZEM HYDROCHLORIDE
     Indication: Hypertension
     Dosage: 240 MILLIGRAM, QD
     Route: 065
     Dates: start: 2017
  7. ATORVASTATIN [Concomitant]
     Active Substance: ATORVASTATIN
     Indication: Blood cholesterol abnormal
     Dosage: 10 MILLIGRAM, QD
     Route: 065
     Dates: start: 2017
  8. LEVOTHYROXINE [Concomitant]
     Active Substance: LEVOTHYROXINE
     Indication: Thyroid disorder
     Dosage: 0.75 MILLIGRAM, QD
     Route: 065
     Dates: start: 2021
  9. MYRBETRIQ [Concomitant]
     Active Substance: MIRABEGRON
     Indication: Hypertonic bladder
     Dosage: 50 MILLIGRAM, QD
     Route: 065
     Dates: start: 2017
  10. TROSPIUM [Concomitant]
     Active Substance: TROSPIUM
     Indication: Hypertonic bladder
     Dosage: 60 MILLIGRAM, QD
     Route: 065
     Dates: start: 202110

REACTIONS (10)
  - Weight decreased [Unknown]
  - Splenomegaly [Unknown]
  - White blood cell count increased [Not Recovered/Not Resolved]
  - Myelofibrosis [Unknown]
  - Musculoskeletal discomfort [Unknown]
  - Fatigue [Recovered/Resolved]
  - Myalgia [Unknown]
  - Abdominal pain [Unknown]
  - Decreased appetite [Unknown]
  - Red blood cell count decreased [Unknown]

NARRATIVE: CASE EVENT DATE: 20220501
